FAERS Safety Report 4343511-X (Version None)
Quarter: 2004Q2

REPORT INFORMATION
  Report Type: 
  Country: None (occurrence: None)
  Receive Date: 20040419
  Receipt Date: 20040406
  Transmission Date: 20050107
  Serious: Yes (Other)
  Sender: FDA-Public Use
  Company Number: 200410712BCC

PATIENT
  Age: 34 Year
  Sex: Female
  Weight: 61.6892 kg

DRUGS (2)
  1. RID MOUSSE [Suspect]
     Indication: LICE INFESTATION
     Dosage: ONCE, TOPICAL
     Route: 062
     Dates: start: 20040101
  2. PRENATAL VITAMINS [Concomitant]

REACTIONS (3)
  - ACCIDENTAL EXPOSURE [None]
  - FOETAL GROWTH RETARDATION [None]
  - MATERNAL DRUGS AFFECTING FOETUS [None]
